FAERS Safety Report 19378212 (Version 6)
Quarter: 2025Q1

REPORT INFORMATION
  Report Type: Report from Study
  Country: US (occurrence: US)
  Receive Date: 20210605
  Receipt Date: 20250214
  Transmission Date: 20250409
  Serious: Yes (Hospitalization)
  Sender: TAKEDA
  Company Number: US-TAKEDA-2021TUS035157

PATIENT
  Sex: Female
  Weight: 58 kg

DRUGS (15)
  1. HUMAN IMMUNOGLOBULIN G [Suspect]
     Active Substance: HUMAN IMMUNOGLOBULIN G
     Indication: Immunodeficiency common variable
     Dosage: 7 GRAM, 1/WEEK
     Dates: start: 20171108
  2. DIPHENHYDRAMINE [Concomitant]
     Active Substance: DIPHENHYDRAMINE
  3. EPINEPHRINE [Concomitant]
     Active Substance: EPINEPHRINE
  4. SODIUM CHLORIDE [Concomitant]
     Active Substance: SODIUM CHLORIDE
  5. HYDROCODONE BITARTRATE [Concomitant]
     Active Substance: HYDROCODONE BITARTRATE
  6. HYDROCODONE [Concomitant]
     Active Substance: HYDROCODONE
  7. ACETAMINOPHEN [Concomitant]
     Active Substance: ACETAMINOPHEN
  8. SEROQUEL [Concomitant]
     Active Substance: QUETIAPINE FUMARATE
  9. ALPRAZOLAM [Concomitant]
     Active Substance: ALPRAZOLAM
  10. SODIUM CHLORIDE [Concomitant]
     Active Substance: SODIUM CHLORIDE
  11. Lmx [Concomitant]
  12. TEMAZEPAM [Concomitant]
     Active Substance: TEMAZEPAM
  13. LYRICA [Concomitant]
     Active Substance: PREGABALIN
  14. LIDOCAINE [Concomitant]
     Active Substance: LIDOCAINE
  15. DIPHENHYDRAMINE HYDROCHLORIDE [Concomitant]
     Active Substance: DIPHENHYDRAMINE HYDROCHLORIDE

REACTIONS (9)
  - Cardiac disorder [Unknown]
  - Seasonal allergy [Unknown]
  - Product dose omission issue [Unknown]
  - Sinusitis [Unknown]
  - Influenza [Unknown]
  - Oropharyngeal pain [Unknown]
  - Cough [Unknown]
  - Pain [Unknown]
  - Pyrexia [Unknown]
